FAERS Safety Report 16088442 (Version 1)
Quarter: 2019Q1

REPORT INFORMATION
  Report Type: Report from Study
  Country: ES (occurrence: ES)
  Receive Date: 20190319
  Receipt Date: 20190319
  Transmission Date: 20190418
  Serious: Yes (Hospitalization)
  Sender: FDA-Public Use
  Company Number: ES-ROCHE-2279821

PATIENT
  Sex: Male
  Weight: 73 kg

DRUGS (1)
  1. ESBRIET [Suspect]
     Active Substance: PIRFENIDONE
     Indication: IDIOPATHIC PULMONARY FIBROSIS
     Route: 048
     Dates: start: 20160316, end: 20180415

REACTIONS (2)
  - Hepatotoxicity [Recovered/Resolved with Sequelae]
  - Gastrointestinal disorder [Recovered/Resolved with Sequelae]
